FAERS Safety Report 23535774 (Version 1)
Quarter: 2024Q1

REPORT INFORMATION
  Report Type: Report from Study
  Country: DK (occurrence: DK)
  Receive Date: 20240218
  Receipt Date: 20240218
  Transmission Date: 20240409
  Serious: Yes (Hospitalization, Congenital Anomaly, Other)
  Sender: FDA-Public Use
  Company Number: DK-JNJFOC-20240239247

PATIENT

DRUGS (2)
  1. STELARA [Suspect]
     Active Substance: USTEKINUMAB
     Indication: Product used for unknown indication
     Route: 064
  2. AZATHIOPRINE [Suspect]
     Active Substance: AZATHIOPRINE
     Route: 064

REACTIONS (25)
  - Gastrointestinal infection [Unknown]
  - Pneumonia [Unknown]
  - Upper respiratory tract infection [Unknown]
  - Lower respiratory tract infection [Unknown]
  - Infection [Unknown]
  - Urinary tract infection [Unknown]
  - Escherichia sepsis [Unknown]
  - Premature baby [Unknown]
  - Neonatal respiratory distress syndrome [Unknown]
  - Jaundice neonatal [Unknown]
  - Cardio-respiratory arrest [Unknown]
  - Congenital hydronephrosis [Unknown]
  - Atrial septal defect [Unknown]
  - Cerebral ventricle dilatation [Unknown]
  - Pectus excavatum [Unknown]
  - Small for dates baby [Unknown]
  - Otitis media acute [Unknown]
  - COVID-19 [Unknown]
  - Placental transfusion syndrome [Unknown]
  - Apgar score low [Unknown]
  - Low birth weight baby [Unknown]
  - Stahl^s ear [Unknown]
  - Skin infection [Unknown]
  - Foetal exposure during pregnancy [Unknown]
  - Exposure via breast milk [Unknown]
